FAERS Safety Report 16010810 (Version 2)
Quarter: 2019Q1

REPORT INFORMATION
  Report Type: Report from Study
  Country: US (occurrence: US)
  Receive Date: 20190227
  Receipt Date: 20190321
  Transmission Date: 20190418
  Serious: Yes (Death, Other)
  Sender: FDA-Public Use
  Company Number: US-GILEAD-2019-0393430

PATIENT
  Age: 86 Year
  Sex: Female
  Weight: 67.12 kg

DRUGS (23)
  1. FENOFIBRATE. [Concomitant]
     Active Substance: FENOFIBRATE
  2. AMBRISENTAN [Suspect]
     Active Substance: AMBRISENTAN
     Indication: PRODUCT USED FOR UNKNOWN INDICATION
     Dosage: 10 MG, QD
     Route: 048
     Dates: start: 20181010
  3. ADCIRCA [Concomitant]
     Active Substance: TADALAFIL
  4. KLOR-CON [Concomitant]
     Active Substance: POTASSIUM CHLORIDE
  5. TADALAFIL. [Concomitant]
     Active Substance: TADALAFIL
  6. CLOPIDOGREL [Concomitant]
     Active Substance: CLOPIDOGREL BISULFATE
  7. IPRATROPIUM BROMIDE. [Concomitant]
     Active Substance: IPRATROPIUM BROMIDE
  8. REVATIO [Concomitant]
     Active Substance: SILDENAFIL CITRATE
  9. BUDESONIDE. [Concomitant]
     Active Substance: BUDESONIDE
  10. SYMBICORT [Concomitant]
     Active Substance: BUDESONIDE\FORMOTEROL FUMARATE DIHYDRATE
  11. FLUTICASONE. [Concomitant]
     Active Substance: FLUTICASONE
  12. AMLODIPINE BESYLATE. [Concomitant]
     Active Substance: AMLODIPINE BESYLATE
  13. LOSARTAN. [Concomitant]
     Active Substance: LOSARTAN
  14. FUROSEMIDE. [Concomitant]
     Active Substance: FUROSEMIDE
  15. LASIX [Concomitant]
     Active Substance: FUROSEMIDE
  16. FORMOTEROL FUMARATE [Concomitant]
     Active Substance: FORMOTEROL FUMARATE
  17. ALPRAZOLAM. [Concomitant]
     Active Substance: ALPRAZOLAM
  18. TRELEGY ELLIPTA [Concomitant]
     Active Substance: FLUTICASONE FUROATE\UMECLIDINIUM BROMIDE\VILANTEROL TRIFENATATE
  19. HYDRALAZINE [Concomitant]
     Active Substance: HYDRALAZINE HYDROCHLORIDE
  20. ELIQUIS [Concomitant]
     Active Substance: APIXABAN
  21. SPIRIVA [Concomitant]
     Active Substance: TIOTROPIUM BROMIDE MONOHYDRATE
  22. ALBUTEROL SULFATE. [Concomitant]
     Active Substance: ALBUTEROL SULFATE
  23. ASPIR LOW [Concomitant]
     Active Substance: ASPIRIN

REACTIONS (1)
  - Death [Fatal]
